FAERS Safety Report 16539568 (Version 1)
Quarter: 2019Q3

REPORT INFORMATION
  Report Type: Spontaneous
  Country: DE (occurrence: DE)
  Receive Date: 20190708
  Receipt Date: 20190708
  Transmission Date: 20191004
  Serious: Yes (Other)
  Sender: FDA-Public Use
  Company Number: DE-MYLANLABS-2015M1012686

PATIENT
  Sex: Female

DRUGS (2)
  1. LORAZEPAM DURA 1 MG TABLETTEN [Suspect]
     Active Substance: LORAZEPAM
     Indication: PRODUCT USED FOR UNKNOWN INDICATION
     Dosage: 1 MG, ONCE 3 TABLETS
     Route: 048
     Dates: start: 20150414, end: 20150414
  2. ALCOHOL. [Suspect]
     Active Substance: ALCOHOL
     Indication: PRODUCT USED FOR UNKNOWN INDICATION
     Dosage: UNK, ONCE 0.5 BOTTLES
     Route: 048
     Dates: start: 20150414, end: 20150414

REACTIONS (2)
  - Drug abuse [Unknown]
  - Alcoholism [Unknown]
